FAERS Safety Report 12524401 (Version 2)
Quarter: 2016Q3

REPORT INFORMATION
  Report Type: Spontaneous
  Country: BR (occurrence: BR)
  Receive Date: 20160704
  Receipt Date: 20160922
  Transmission Date: 20161109
  Serious: Yes (Hospitalization, Other)
  Sender: FDA-Public Use
  Company Number: BR-AMGEN-BRASP2016083959

PATIENT
  Age: 21 Year
  Sex: Male
  Weight: 55.35 kg

DRUGS (2)
  1. LYRICA [Concomitant]
     Active Substance: PREGABALIN
     Indication: NEUROPATHY PERIPHERAL
     Dosage: 75 MG, ONE TIME DOSE (1 UNIT, 1X)
     Dates: start: 20160201, end: 20160513
  2. NEULASTIM [Suspect]
     Active Substance: PEGFILGRASTIM
     Indication: PROPHYLAXIS
     Dosage: 6 MG, UNK (6 MG/ 01 UNIT OF SINGLE DOSE)
     Route: 058
     Dates: start: 20160507, end: 20160507

REACTIONS (2)
  - Febrile neutropenia [Recovered/Resolved]
  - Decreased immune responsiveness [Recovering/Resolving]

NARRATIVE: CASE EVENT DATE: 2016
